FAERS Safety Report 5162124-3 (Version None)
Quarter: 2006Q4

REPORT INFORMATION
  Report Type: 
  Country: None (occurrence: None)
  Receive Date: 20061121
  Receipt Date: 20061114
  Transmission Date: 20070319
  Serious: Yes (Other)
  Sender: FDA-Public Use
  Company Number: 2006EU003007

PATIENT
  Age: 57 Year
  Sex: Female
  Weight: 71 kg

DRUGS (4)
  1. VESICARE [Suspect]
     Indication: MICTURITION URGENCY
     Dosage: 5 MG, UID/QD, ORAL
     Route: 048
     Dates: start: 20060830, end: 20061109
  2. BENDROFLUAZIDE (BENDROFLUMETHAZIDE) [Concomitant]
  3. RAMIPRIL [Concomitant]
  4. ELLESTE-SOLO (ESTRADIOL) [Concomitant]

REACTIONS (4)
  - DRY EYE [None]
  - DRY SKIN [None]
  - LIP DRY [None]
  - NASAL DRYNESS [None]
